FAERS Safety Report 11504009 (Version 3)
Quarter: 2015Q4

REPORT INFORMATION
  Report Type: Spontaneous
  Country: US (occurrence: US)
  Receive Date: 20150914
  Receipt Date: 20151217
  Transmission Date: 20160304
  Serious: Yes (Other)
  Sender: FDA-Public Use
  Company Number: US-PFIZER INC-2015303086

PATIENT
  Age: 71 Year
  Sex: Female
  Weight: 132 kg

DRUGS (38)
  1. NATURAL VITAMIN C [Concomitant]
     Indication: SUPPLEMENTATION THERAPY
     Dosage: 500 MG, 1X/DAY
     Route: 048
  2. COREG [Concomitant]
     Active Substance: CARVEDILOL
     Dosage: 45 MG, 2X/DAY
  3. FIBER [Concomitant]
     Active Substance: PSYLLIUM HUSK
     Dosage: ONE TABLESPOON A DAY
  4. MAGNESIUM OXIDE. [Concomitant]
     Active Substance: MAGNESIUM OXIDE
     Indication: BLOOD DISORDER
     Dosage: 400 MG, 1X/DAY
     Route: 048
  5. MAGNESIUM OXIDE. [Concomitant]
     Active Substance: MAGNESIUM OXIDE
     Indication: MINERAL SUPPLEMENTATION
  6. VITAMIN B12 [Concomitant]
     Active Substance: CYANOCOBALAMIN
     Dosage: 1000 ?G, 1X/DAY (ONE TABLET BY MOUTH IN THE MORNING)
     Route: 048
  7. EQUATE [Concomitant]
     Active Substance: UNSPECIFIED INGREDIENT
     Indication: ABNORMAL FAECES
     Dosage: UNK, 1X/DAY (ONE TABLESPOON MIXED IN LIQUID ONCE A DAY)
     Route: 048
  8. TIKOSYN [Suspect]
     Active Substance: DOFETILIDE
     Dosage: 250 MG, 2X/DAY
  9. TIKOSYN [Suspect]
     Active Substance: DOFETILIDE
     Dosage: 500 MG, 2X/DAY
  10. CALCIUM 500+D [Concomitant]
     Active Substance: CALCIUM\VITAMIN D
     Dosage: UNK
  11. NEURONTIN [Concomitant]
     Active Substance: GABAPENTIN
     Dosage: 300 MG, UNK
     Dates: start: 201510
  12. LASIX [Concomitant]
     Active Substance: FUROSEMIDE
     Indication: FLUID RETENTION
     Dosage: 40 MG, 1X/DAY
  13. GABAPENTIN. [Concomitant]
     Active Substance: GABAPENTIN
     Indication: PAIN
     Dosage: 600 MG, 3X/DAY
     Route: 048
  14. MAGNESIUM OXIDE. [Concomitant]
     Active Substance: MAGNESIUM OXIDE
     Indication: VITAMIN SUPPLEMENTATION
  15. NEURONTIN [Concomitant]
     Active Substance: GABAPENTIN
     Indication: PAIN
     Dosage: 600 MG, 3X/DAY
     Dates: end: 201510
  16. CARVEDILOL. [Concomitant]
     Active Substance: CARVEDILOL
     Indication: CARDIAC DISORDER
     Dosage: 45 MG, 2X/DAY (ONE TABLET BY MOUTH ONE TABLET IN THE MORNING AND ONE TABLET A NIGHT)
     Route: 048
  17. SPIRIVA [Concomitant]
     Active Substance: TIOTROPIUM BROMIDE MONOHYDRATE
     Indication: DYSPNOEA
     Dosage: 2.5 UG, 1X/DAY  [TWO PUFFS A DAY]
     Dates: start: 201507
  18. VITAMIN E [Concomitant]
     Active Substance: .ALPHA.-TOCOPHEROL
     Indication: SUPPLEMENTATION THERAPY
     Dosage: 400 IU, 1X/DAY (ONE GEL CAPSULE BY MOUTH A DAY)
     Route: 048
  19. MAGNESIUM [Concomitant]
     Active Substance: MAGNESIUM
     Dosage: 400 MG, 1X/DAY
  20. TYLENOL [Concomitant]
     Active Substance: ACETAMINOPHEN
     Indication: PAIN
     Dosage: 500 MG, AS NEEDED (500MG CAPLETS)
     Route: 048
  21. ALEVE [Concomitant]
     Active Substance: NAPROXEN SODIUM
     Indication: PAIN
     Dosage: 220 MG, 2X/DAY (TWO TABLETS BY MOUTH IN THE MORNING)
     Route: 048
  22. STOOL SOFTENER [Concomitant]
     Active Substance: DOCUSATE CALCIUM
     Indication: ABNORMAL FAECES
     Dosage: 100 MG, 1X/DAY
     Route: 048
  23. AMLODIPINE [Concomitant]
     Active Substance: AMLODIPINE BESYLATE
     Indication: CARDIAC DISORDER
     Dosage: 10 MG, 1X/DAY
     Route: 048
  24. POTASSIUM CHLORIDE. [Concomitant]
     Active Substance: POTASSIUM CHLORIDE
     Indication: HYPOKALAEMIA
     Dosage: 20 MEQ, 2X/DAY (ONE TABLET IN THE MORNING AND ONE IN THE AFTERNOON)
     Route: 048
  25. WARFARIN [Concomitant]
     Active Substance: WARFARIN
     Indication: BLOOD DISORDER
     Dosage: 2 MG, 1X/DAY
     Route: 048
  26. CLEARLAX [Concomitant]
     Active Substance: POLYETHYLENE GLYCOL 3350
     Indication: ABNORMAL FAECES
     Dosage: UNK, 1X/DAY (ONE TEASPOON BY MOUTH MIXED IN LIQUID)
     Route: 048
  27. TIKOSYN [Suspect]
     Active Substance: DOFETILIDE
     Dosage: UNK
     Dates: start: 2011
  28. PRAVASTATIN [Concomitant]
     Active Substance: PRAVASTATIN\PRAVASTATIN SODIUM
     Indication: BLOOD CHOLESTEROL INCREASED
     Dosage: 40 MG, 1X/DAY
     Route: 048
  29. VITAMIN D [Concomitant]
     Active Substance: CHOLECALCIFEROL
     Indication: SUPPLEMENTATION THERAPY
     Dosage: UNK, 1X/DAY (ONE TABLET BY MOUTH A DAY)
     Route: 048
  30. LEVOTHYROXINE. [Concomitant]
     Active Substance: LEVOTHYROXINE
     Indication: THYROID DISORDER
     Dosage: 100 UG, 1X/DAY (ONE TABLET BY MOUTH A DAY)
     Route: 048
  31. TIKOSYN [Suspect]
     Active Substance: DOFETILIDE
     Indication: ARRHYTHMIA
     Dosage: 250 TWICE A DAY OR 500 TWICE A DAY
     Dates: start: 2011
  32. AMLODIPINE [Concomitant]
     Active Substance: AMLODIPINE BESYLATE
     Indication: HYPERTENSION
  33. COUMADIN [Concomitant]
     Active Substance: WARFARIN SODIUM
     Indication: COAGULOPATHY
     Dosage: 2 MG, UNK
  34. ASPIRIN. [Concomitant]
     Active Substance: ASPIRIN
     Indication: CARDIAC DISORDER
     Dosage: 81 MG, 1X/DAY
     Route: 048
  35. SYNTHROID [Concomitant]
     Active Substance: LEVOTHYROXINE SODIUM
     Dosage: 100 ?G, UNK
  36. CALCIUM + VITAMIN D [Concomitant]
     Active Substance: CALCIUM\VITAMIN D
     Dosage: UNK, 1X/DAY
  37. GABAPENTIN. [Concomitant]
     Active Substance: GABAPENTIN
     Dosage: 300 MG, UNK
  38. CALCIUM +D [Concomitant]
     Active Substance: CALCIUM\VITAMIN D
     Indication: SUPPLEMENTATION THERAPY
     Dosage: 500 MG, 1X/DAY
     Route: 048

REACTIONS (4)
  - Cardiac failure congestive [Recovered/Resolved]
  - Condition aggravated [Recovered/Resolved]
  - Dyspnoea [Not Recovered/Not Resolved]
  - Drug ineffective [Recovered/Resolved]
